FAERS Safety Report 8860558 (Version 2)
Quarter: 2012Q4

REPORT INFORMATION
  Report Type: 
  Country: CH (occurrence: CH)
  Receive Date: 20121025
  Receipt Date: 20121108
  Transmission Date: 20130627
  Serious: Yes (Hospitalization, Other)
  Sender: FDA-Public Use
  Company Number: CH-PFIZER INC-2012264367

PATIENT
  Sex: Female

DRUGS (1)
  1. AXITINIB [Suspect]
     Indication: METASTATIC RENAL CELL CARCINOMA
     Dosage: 5 mg, 2x (no further specified)
     Route: 048
     Dates: start: 201210

REACTIONS (2)
  - Cerebrovascular insufficiency [Unknown]
  - Aphasia [Recovered/Resolved]
